FAERS Safety Report 19796166 (Version 6)
Quarter: 2023Q2

REPORT INFORMATION
  Report Type: Spontaneous
  Country: PL (occurrence: PL)
  Receive Date: 20210907
  Receipt Date: 20230609
  Transmission Date: 20230722
  Serious: Yes (Disabling, Other)
  Sender: FDA-Public Use
  Company Number: NVSC2021PL182746

PATIENT
  Age: 68 Year
  Sex: Female

DRUGS (15)
  1. DULOXETINE [Interacting]
     Active Substance: DULOXETINE
     Indication: Depression
     Dosage: 60 MG, QD (24 HOURS)
     Route: 065
  2. METOPROLOL [Interacting]
     Active Substance: METOPROLOL
     Indication: Palpitations
     Dosage: 100 MG, QD (METOPROLOL ZERO-ORDER KINETICS (ZOK))
     Route: 065
  3. METOPROLOL [Interacting]
     Active Substance: METOPROLOL
     Indication: Depression
  4. ETORICOXIB [Suspect]
     Active Substance: ETORICOXIB
     Indication: Pain
     Dosage: UNK
     Route: 065
  5. PREGABALIN [Suspect]
     Active Substance: PREGABALIN
     Indication: Pain
     Dosage: UNK
     Route: 048
  6. CIPROFLOXACIN [Interacting]
     Active Substance: CIPROFLOXACIN
     Indication: Arthritis
     Dosage: 1000 MG, QD
     Route: 048
  7. CIPROFLOXACIN [Interacting]
     Active Substance: CIPROFLOXACIN
     Indication: Arthralgia
  8. CIPROFLOXACIN [Interacting]
     Active Substance: CIPROFLOXACIN
     Indication: Inflammation
  9. CIPROFLOXACIN [Interacting]
     Active Substance: CIPROFLOXACIN
     Indication: Arthritis infective
  10. CELECOXIB [Interacting]
     Active Substance: CELECOXIB
     Indication: Arthritis
     Dosage: 400 MG, QD
     Route: 065
  11. CELECOXIB [Interacting]
     Active Substance: CELECOXIB
     Indication: Arthralgia
  12. CELECOXIB [Interacting]
     Active Substance: CELECOXIB
     Indication: Inflammation
  13. ALPRAZOLAM [Interacting]
     Active Substance: ALPRAZOLAM
     Indication: Depression
     Dosage: 1 MG (2 X 0.5 MG (SUSTAINED RELEASE))
     Route: 065
  14. ALPRAZOLAM [Interacting]
     Active Substance: ALPRAZOLAM
     Indication: Anxiety disorder
     Dosage: 0.5 MG, QD
     Route: 065
  15. ALPRAZOLAM [Interacting]
     Active Substance: ALPRAZOLAM
     Dosage: 1 MG, QD (0.5 MILLIGRAM, BID)
     Route: 065

REACTIONS (15)
  - Visual field defect [Recovered/Resolved]
  - Hallucination, visual [Recovered/Resolved]
  - Eye pain [Recovered/Resolved]
  - Hyperhidrosis [Recovered/Resolved]
  - Eye irritation [Recovered/Resolved]
  - Vitreous floaters [Recovered/Resolved]
  - Visual impairment [Recovered/Resolved]
  - Thermal burns of eye [Recovered/Resolved]
  - Headache [Unknown]
  - Dyschromatopsia [Recovered/Resolved]
  - Excessive eye blinking [Unknown]
  - Eye disorder [Recovered/Resolved]
  - Drug ineffective [Unknown]
  - Contraindicated product administered [Unknown]
  - Drug interaction [Unknown]
